FAERS Safety Report 9211475 (Version 2)
Quarter: 2014Q1

REPORT INFORMATION
  Report Type: Spontaneous
  Country: US (occurrence: US)
  Receive Date: 20130404
  Receipt Date: 20140307
  Transmission Date: 20141002
  Serious: No
  Sender: FDA-Public Use
  Company Number: US-AMGEN-USASP2013016484

PATIENT
  Age: 20 Year
  Sex: Female

DRUGS (3)
  1. ENBREL [Suspect]
     Indication: RHEUMATOID ARTHRITIS
     Dosage: 50 MG, QWK
     Route: 065
     Dates: start: 2013
  2. ENBREL [Suspect]
     Indication: JUVENILE IDIOPATHIC ARTHRITIS
  3. METHOTREXATE [Concomitant]
     Dosage: 10 MG, QWK
     Route: 048
     Dates: start: 1980

REACTIONS (3)
  - Upper respiratory tract congestion [Recovered/Resolved]
  - Nasal discharge discolouration [Recovered/Resolved]
  - Upper respiratory tract infection [Not Recovered/Not Resolved]
